FAERS Safety Report 6647694-8 (Version None)
Quarter: 2010Q1

REPORT INFORMATION
  Report Type: 
  Country: None (occurrence: None)
  Receive Date: 20100323
  Receipt Date: 20100323
  Transmission Date: 20100710
  Serious: Yes (Other)
  Sender: FDA-Public Use
  Company Number: None

PATIENT
  Age: 60 Year
  Sex: Female
  Weight: 39.9165 kg

DRUGS (3)
  1. FLAGYL [Suspect]
     Indication: ABDOMINAL PAIN
     Dosage: 500 MG 3 TIMES DAILY A WEEK
     Dates: start: 20090806, end: 20090813
  2. FLAGYL [Suspect]
     Indication: ABDOMINAL PAIN UPPER
     Dosage: 500 MG 3 TIMES DAILY A WEEK
     Dates: start: 20090806, end: 20090813
  3. FLAGYL [Suspect]
     Indication: LARGE INTESTINAL HAEMORRHAGE
     Dosage: 500 MG 3 TIMES DAILY A WEEK
     Dates: start: 20090806, end: 20090813

REACTIONS (5)
  - ASTHENIA [None]
  - DEPRESSION [None]
  - SWELLING [None]
  - THYROID DISORDER [None]
  - TONGUE DISCOLOURATION [None]
